FAERS Safety Report 13494011 (Version 1)
Quarter: 2017Q2

REPORT INFORMATION
  Report Type: Spontaneous
  Country: EG (occurrence: EG)
  Receive Date: 20170427
  Receipt Date: 20170427
  Transmission Date: 20170830
  Serious: Yes (Other)
  Sender: FDA-Public Use
  Company Number: EG-MYLANLABS-2017M1025213

PATIENT

DRUGS (2)
  1. CISPLATIN MYLAN [Suspect]
     Active Substance: CISPLATIN
     Indication: BRONCHIAL CARCINOMA
     Dosage: UNK
  2. GEMCITABINE [Suspect]
     Active Substance: GEMCITABINE\GEMCITABINE HYDROCHLORIDE
     Indication: BRONCHIAL CARCINOMA
     Dosage: UNK

REACTIONS (1)
  - Blood creatinine increased [Recovered/Resolved]
